FAERS Safety Report 16709964 (Version 1)
Quarter: 2019Q3

REPORT INFORMATION
  Report Type: Spontaneous
  Country: US (occurrence: US)
  Receive Date: 20190812
  Receipt Date: 20190812
  Transmission Date: 20191004
  Serious: Yes (Hospitalization, Disabling)
  Sender: FDA-Public Use
  Company Number: None

PATIENT
  Age: 32 Year
  Sex: Male
  Weight: 67.5 kg

DRUGS (2)
  1. DMSA [Suspect]
     Active Substance: SUCCIMER
     Indication: METAL POISONING
     Route: 048
     Dates: start: 20160810, end: 20190301
  2. DMPS [Suspect]
     Active Substance: 2,3-DIMERCAPTO-1-PROPANESULFONIC ACID
     Indication: METAL POISONING
     Route: 048
     Dates: start: 20150806, end: 20190308

REACTIONS (2)
  - Metal poisoning [None]
  - General physical health deterioration [None]

NARRATIVE: CASE EVENT DATE: 20170816
